FAERS Safety Report 9156182 (Version 1)
Quarter: 2013Q1

REPORT INFORMATION
  Report Type: Spontaneous
  Country: US (occurrence: US)
  Receive Date: 20130123
  Receipt Date: 20130123
  Transmission Date: 20140127
  Serious: No
  Sender: FDA-Public Use
  Company Number: US-BRACCO-008315

PATIENT
  Age: 18 Year
  Sex: Male
  Weight: 61 kg

DRUGS (4)
  1. MULTIHANCE [Suspect]
     Indication: CONVULSION
     Route: 042
     Dates: start: 20120706, end: 20120706
  2. MULTIHANCE [Suspect]
     Indication: HEADACHE
     Route: 042
     Dates: start: 20120706, end: 20120706
  3. MULTIHANCE [Suspect]
     Indication: NUCLEAR MAGNETIC RESONANCE IMAGING BRAIN
     Route: 042
     Dates: start: 20120706, end: 20120706
  4. ANESTHETICS, GENERAL [Concomitant]
     Dosage: THE EXAM WAS PERFORMED UNDER GENERAL ANESTHESIA
     Dates: start: 20120706, end: 20120706

REACTIONS (3)
  - Laryngospasm [Recovered/Resolved]
  - Erythema [Recovered/Resolved]
  - Urticaria [Recovered/Resolved]
